FAERS Safety Report 8455819-7 (Version None)
Quarter: 2012Q2

REPORT INFORMATION
  Report Type: 
  Country: None (occurrence: None)
  Receive Date: 20120621
  Receipt Date: 20120612
  Transmission Date: 20120825
  Serious: Yes (Disabling, Other)
  Sender: FDA-Public Use
  Company Number: FR-ASTRAZENECA-2012SE38400

PATIENT
  Age: 25167 Day
  Sex: Male

DRUGS (17)
  1. LEVOTHYROXINE SODIUM [Concomitant]
     Indication: HYPOTHYROIDISM
     Route: 048
     Dates: end: 20070326
  2. UNALFA [Concomitant]
     Route: 048
     Dates: start: 20080919
  3. LEVOTHYROXINE SODIUM [Concomitant]
     Route: 048
     Dates: start: 20070717, end: 20080111
  4. UNALFA [Concomitant]
     Indication: HYPOCALCAEMIA
     Route: 048
     Dates: start: 20071024, end: 20080403
  5. METOPROLOL TARTRATE [Concomitant]
     Indication: CARDIOVASCULAR EVENT PROPHYLAXIS
     Route: 048
     Dates: start: 20090202
  6. LEVOTHYROXINE SODIUM [Concomitant]
     Route: 048
     Dates: start: 20080405
  7. ZD6474 [Suspect]
     Indication: THYROID CANCER
     Dosage: BLINDED THERAPY, DAILY
     Route: 048
     Dates: start: 20070129, end: 20100721
  8. ZD6474 [Suspect]
     Route: 048
     Dates: start: 20100722
  9. UNALFA [Concomitant]
     Route: 048
     Dates: start: 20080628, end: 20080918
  10. LEVOTHYROXINE SODIUM [Concomitant]
     Route: 048
     Dates: start: 20070327, end: 20070716
  11. CALCIUM [Concomitant]
     Indication: HYPOCALCAEMIA
     Route: 048
     Dates: start: 20071024, end: 20080403
  12. CANDESARTAN CILEXETIL [Concomitant]
     Indication: HYPERTENSION
     Route: 048
     Dates: start: 20081201
  13. IMODIUM [Concomitant]
     Indication: DIARRHOEA
     Route: 048
  14. LEVOTHYROXINE SODIUM [Concomitant]
     Route: 048
     Dates: start: 20080112, end: 20080404
  15. CALCIUM [Concomitant]
     Route: 048
     Dates: start: 20080404
  16. METOPROLOL TARTRATE [Concomitant]
     Route: 048
     Dates: start: 20110623
  17. HYTACANB [Concomitant]
     Indication: HYPERTENSION
     Route: 048
     Dates: start: 20110906

REACTIONS (1)
  - VERTIGO [None]
